FAERS Safety Report 5245887-8 (Version None)
Quarter: 2007Q1

REPORT INFORMATION
  Report Type: 
  Country: None (occurrence: None)
  Receive Date: 20070216
  Receipt Date: 20070206
  Transmission Date: 20070707
  Serious: Yes (Hospitalization)
  Sender: FDA-Public Use
  Company Number: 2007US000287

PATIENT
  Age: 54 Year
  Sex: Female
  Weight: 64 kg

DRUGS (10)
  1. AMBISOME [Suspect]
     Indication: LARYNGITIS BACTERIAL
     Dosage: 5 MG/KG, UID/QD, IV NOS
     Route: 042
     Dates: start: 20061108, end: 20061111
  2. FLUCYTOSINE(FLUCYTOSINE) [Suspect]
     Indication: LARYNGITIS BACTERIAL
     Dosage: 100 MG/KG, UID/QD, ORAL
     Route: 048
     Dates: start: 20061110, end: 20061111
  3. IMIPRAMINE [Concomitant]
  4. ESCITALOPRAM OXALATE [Concomitant]
  5. BACLOFEN [Concomitant]
  6. ACYCLOVIR [Concomitant]
  7. ESOMEPRAZOLE (ESOMEPRAZOLE) [Concomitant]
  8. CETIRIZNE (CETIRIZINE) [Concomitant]
  9. TOLTERODINE TARTRATE [Concomitant]
  10. RELAFEN [Concomitant]

REACTIONS (12)
  - CARDIAC FAILURE [None]
  - CARDIOGENIC SHOCK [None]
  - CONGESTIVE CARDIOMYOPATHY [None]
  - CRYPTOCOCCOSIS [None]
  - HYPERHIDROSIS [None]
  - LARYNGITIS [None]
  - MENTAL STATUS CHANGES [None]
  - NAUSEA [None]
  - PATHOGEN RESISTANCE [None]
  - PLEURAL EFFUSION [None]
  - RESPIRATORY DISORDER [None]
  - SEPTIC SHOCK [None]
